FAERS Safety Report 23813399 (Version 2)
Quarter: 2024Q3

REPORT INFORMATION
  Report Type: Report from Study
  Country: US (occurrence: US)
  Receive Date: 20240503
  Receipt Date: 20240701
  Transmission Date: 20241016
  Serious: Yes (Hospitalization)
  Sender: EISAI
  Company Number: US-Eisai-EC-2024-164587

PATIENT
  Age: 77 Year
  Sex: Female

DRUGS (3)
  1. LENVIMA [Suspect]
     Active Substance: LENVATINIB
     Indication: Renal cancer
     Dosage: 20 MG EVERY OTHER DAY AND 10 MG IN BETWEEN DAYS.
     Route: 048
     Dates: start: 20240411, end: 20240417
  2. LENVIMA [Suspect]
     Active Substance: LENVATINIB
     Indication: Renal cell carcinoma
     Dosage: ON MONDAYS, WEDNESDAYS AND FRIDAYS.
     Route: 048
     Dates: start: 2024
  3. KEYTRUDA [Concomitant]
     Active Substance: PEMBROLIZUMAB
     Dosage: DOSE UNKNOWN
     Route: 042

REACTIONS (4)
  - Pulmonary embolism [Unknown]
  - Bladder dysfunction [Unknown]
  - Diverticulitis [Unknown]
  - Tumour rupture [Unknown]

NARRATIVE: CASE EVENT DATE: 20240418
